FAERS Safety Report 5796135-1 (Version None)
Quarter: 2008Q3

REPORT INFORMATION
  Report Type: 
  Country: None (occurrence: None)
  Receive Date: 20080701
  Receipt Date: 20080626
  Transmission Date: 20090109
  Serious: Yes (Life-Threatening, Hospitalization)
  Sender: FDA-Public Use
  Company Number: ES-BRISTOL-MYERS SQUIBB COMPANY-14241921

PATIENT
  Age: 55 Year
  Sex: Female

DRUGS (3)
  1. TAXOL [Suspect]
     Indication: BREAST CANCER
     Dosage: 1 DOSAGE FORM = 6MG/ML INITIAL DOSE: 21DEC07
     Route: 042
     Dates: start: 20080212, end: 20080212
  2. MYOCET [Suspect]
     Indication: BREAST CANCER
     Dosage: 1 DOSAGE FORM =50 MG IV DOX-1V LIPO+1V TAM1 INITIAL DOSE: 21DEC07
     Route: 042
     Dates: start: 20080205, end: 20080205
  3. HERCEPTIN [Suspect]
     Indication: BREAST CANCER
     Dosage: 1 VIAL INITIAL DOSE: 21DEC07
     Route: 042
     Dates: start: 20080205, end: 20080205

REACTIONS (2)
  - INTERSTITIAL LUNG DISEASE [None]
  - PANCREATITIS [None]
